FAERS Safety Report 20964625 (Version 1)
Quarter: 2022Q2

REPORT INFORMATION
  Report Type: Report from Study
  Country: US (occurrence: US)
  Receive Date: 20220615
  Receipt Date: 20220615
  Transmission Date: 20220721
  Serious: Yes (Hospitalization)
  Sender: FDA-Public Use
  Company Number: US-BIOCRYST PHARMACEUTICALS, INC.-2022BCR00344

PATIENT

DRUGS (14)
  1. BEROTRALSTAT [Suspect]
     Active Substance: BEROTRALSTAT
     Indication: Hereditary angioedema
     Dosage: 150 MG, QD
     Route: 048
     Dates: start: 20210826
  2. CLONAZEPAM [Concomitant]
     Active Substance: CLONAZEPAM
  3. CYCLOBENZAPRINE [Concomitant]
     Active Substance: CYCLOBENZAPRINE
  4. EPINEPHRINE [Concomitant]
     Active Substance: EPINEPHRINE
  5. GLIMEPIRIDE [Concomitant]
     Active Substance: GLIMEPIRIDE
  6. IBUPROFEN [Concomitant]
     Active Substance: IBUPROFEN
  7. MAXZIDE [Concomitant]
     Active Substance: HYDROCHLOROTHIAZIDE\TRIAMTERENE
  8. METOPROLOL [Concomitant]
     Active Substance: METOPROLOL
  9. NORETHINDRONE [Concomitant]
     Active Substance: NORETHINDRONE
  10. PROMETHAZINE [Concomitant]
     Active Substance: PROMETHAZINE HYDROCHLORIDE
  11. RELPAX [Concomitant]
     Active Substance: ELETRIPTAN HYDROBROMIDE
  12. RUCONEST [Concomitant]
     Active Substance: HUMAN C1-ESTERASE INHIBITOR
  13. SERTRALINE [Concomitant]
     Active Substance: SERTRALINE HYDROCHLORIDE
  14. TRULICITY [Concomitant]
     Active Substance: DULAGLUTIDE

REACTIONS (4)
  - Nausea [Unknown]
  - Vomiting [Unknown]
  - Hereditary angioedema [Unknown]
  - Feeling abnormal [Unknown]

NARRATIVE: CASE EVENT DATE: 20220101
